FAERS Safety Report 20015756 (Version 1)
Quarter: 2021Q4

REPORT INFORMATION
  Report Type: Spontaneous
  Country: US (occurrence: None)
  Receive Date: 20211101
  Receipt Date: 20211101
  Transmission Date: 20220303
  Serious: Yes (Hospitalization)
  Sender: FDA-Public Use
  Company Number: None

PATIENT
  Age: 95 Year
  Sex: Male
  Weight: 75 kg

DRUGS (1)
  1. LENALIDOMIDE [Suspect]
     Active Substance: LENALIDOMIDE
     Indication: Plasma cell myeloma
     Dosage: FREQUENCY : DAILY;?
     Route: 048
     Dates: start: 20210510, end: 20210618

REACTIONS (10)
  - Rash maculo-papular [None]
  - Pruritus [None]
  - Asthenia [None]
  - Dysstasia [None]
  - Decreased appetite [None]
  - Weight decreased [None]
  - Diarrhoea [None]
  - Hypertension [None]
  - Pancytopenia [None]
  - Drug reaction with eosinophilia and systemic symptoms [None]

NARRATIVE: CASE EVENT DATE: 20210618
